FAERS Safety Report 12540718 (Version 1)
Quarter: 2016Q3

REPORT INFORMATION
  Report Type: Report from Study
  Country: BR (occurrence: BR)
  Receive Date: 20160708
  Receipt Date: 20160708
  Transmission Date: 20161109
  Serious: Yes (Hospitalization, Other)
  Sender: FDA-Public Use
  Company Number: PHHY2016BR091530

PATIENT
  Sex: Male
  Weight: 88 kg

DRUGS (3)
  1. FORMOTEROL [Concomitant]
     Active Substance: FORMOTEROL
     Indication: PRODUCT USED FOR UNKNOWN INDICATION
     Route: 055
  2. FORASEQ [Suspect]
     Active Substance: BUDESONIDE\FORMOTEROL FUMARATE
     Indication: ASTHMA
     Dosage: FROM LONG TIME AGO
     Route: 055
  3. FORASEQ [Suspect]
     Active Substance: BUDESONIDE\FORMOTEROL FUMARATE
     Indication: DYSPNOEA

REACTIONS (3)
  - Pneumonia [Recovering/Resolving]
  - Dyspnoea [Recovering/Resolving]
  - Malaise [Recovering/Resolving]
